FAERS Safety Report 16653386 (Version 1)
Quarter: 2019Q3

REPORT INFORMATION
  Report Type: Report from Study
  Country: US (occurrence: US)
  Receive Date: 20190731
  Receipt Date: 20190731
  Transmission Date: 20191004
  Serious: Yes (Hospitalization, Other)
  Sender: FDA-Public Use
  Company Number: US-JNJFOC-20190344672

PATIENT
  Sex: Male

DRUGS (1)
  1. IMBRUVICA [Suspect]
     Active Substance: IBRUTINIB
     Indication: CHRONIC LYMPHOCYTIC LEUKAEMIA
     Route: 048
     Dates: start: 20190315

REACTIONS (11)
  - Musculoskeletal stiffness [Unknown]
  - Fatigue [Unknown]
  - Encephalopathy [Unknown]
  - Contusion [Unknown]
  - Atrial fibrillation [Unknown]
  - Gait inability [Unknown]
  - Dry skin [Unknown]
  - Muscle spasms [Unknown]
  - Fall [Unknown]
  - Dementia [Unknown]
  - Arthralgia [Unknown]
